FAERS Safety Report 19048371 (Version 2)
Quarter: 2021Q2

REPORT INFORMATION
  Report Type: Report from Study
  Country: None (occurrence: JP)
  Receive Date: 20210323
  Receipt Date: 20210405
  Transmission Date: 20210717
  Serious: Yes (Other)
  Sender: FDA-Public Use
  Company Number: JP-ABBVIE-21K-087-3819717-00

PATIENT
  Age: 75 Year
  Sex: Male
  Weight: 54.5 kg

DRUGS (14)
  1. VENCLEXTA [Suspect]
     Active Substance: VENETOCLAX
     Route: 048
     Dates: start: 20200702, end: 202007
  2. RITUXIMAB. [Concomitant]
     Active Substance: RITUXIMAB
     Dates: start: 20200924, end: 2020
  3. VENCLEXTA [Suspect]
     Active Substance: VENETOCLAX
     Route: 048
     Dates: start: 20200722, end: 2020
  4. VENCLEXTA [Suspect]
     Active Substance: VENETOCLAX
     Indication: CHRONIC LYMPHOCYTIC LEUKAEMIA
     Route: 048
     Dates: start: 20200626, end: 2020
  5. VENCLEXTA [Suspect]
     Active Substance: VENETOCLAX
     Route: 048
     Dates: start: 20200708, end: 202007
  6. VENCLEXTA [Suspect]
     Active Substance: VENETOCLAX
     Route: 048
     Dates: start: 20200914
  7. RITUXIMAB. [Concomitant]
     Active Substance: RITUXIMAB
     Dates: start: 20200825, end: 2020
  8. RITUXIMAB. [Concomitant]
     Active Substance: RITUXIMAB
     Indication: PRODUCT USED FOR UNKNOWN INDICATION
     Dates: start: 20200728, end: 2020
  9. RITUXIMAB. [Concomitant]
     Active Substance: RITUXIMAB
     Dates: start: 20201221
  10. FEBURIC [Suspect]
     Active Substance: FEBUXOSTAT
     Indication: PROPHYLAXIS
     Route: 048
     Dates: start: 20200625, end: 20201007
  11. RITUXIMAB. [Concomitant]
     Active Substance: RITUXIMAB
     Dates: start: 20201118, end: 2020
  12. VENCLEXTA [Suspect]
     Active Substance: VENETOCLAX
     Route: 048
     Dates: start: 20210301
  13. VENCLEXTA [Suspect]
     Active Substance: VENETOCLAX
     Route: 048
     Dates: start: 20200715, end: 202007
  14. RITUXIMAB. [Concomitant]
     Active Substance: RITUXIMAB
     Dates: start: 20201021, end: 2020

REACTIONS (2)
  - Neutrophil count decreased [Recovering/Resolving]
  - Anal squamous cell carcinoma [Not Recovered/Not Resolved]

NARRATIVE: CASE EVENT DATE: 20200713
